FAERS Safety Report 8584991-3 (Version None)
Quarter: 2012Q3

REPORT INFORMATION
  Report Type: 
  Country: None (occurrence: None)
  Receive Date: 20120810
  Receipt Date: 20120807
  Transmission Date: 20120928
  Serious: Yes (Other)
  Sender: FDA-Public Use
  Company Number: DE-PFIZER INC-2012192046

PATIENT
  Age: 55 Year
  Sex: Male
  Weight: 70 kg

DRUGS (2)
  1. TEMSIROLIMUS [Suspect]
     Indication: RENAL CELL CARCINOMA
     Dosage: 25 MG, ONCE WEEKLY
     Route: 042
     Dates: start: 20111205
  2. DEXAMETHASONE [Suspect]
     Indication: METASTASES TO CENTRAL NERVOUS SYSTEM
     Dosage: 8 MG, WEEKLY
     Route: 048
     Dates: start: 20111128, end: 20120104

REACTIONS (3)
  - CONFUSIONAL STATE [None]
  - RESTLESSNESS [None]
  - INSOMNIA [None]
